FAERS Safety Report 14929868 (Version 6)
Quarter: 2019Q2

REPORT INFORMATION
  Report Type: Spontaneous
  Country: US (occurrence: US)
  Receive Date: 20180523
  Receipt Date: 20190617
  Transmission Date: 20190711
  Serious: Yes (Hospitalization)
  Sender: FDA-Public Use
  Company Number: US-ACTELION-A-US2018-172542

PATIENT
  Sex: Female

DRUGS (3)
  1. ADCIRCA [Concomitant]
     Active Substance: TADALAFIL
  2. TYVASO [Concomitant]
     Active Substance: TREPROSTINIL
  3. TRACLEER [Suspect]
     Active Substance: BOSENTAN
     Indication: PULMONARY ARTERIAL HYPERTENSION
     Dosage: 125 MG, BID
     Route: 048

REACTIONS (8)
  - Pulmonary arterial hypertension [Unknown]
  - Pulmonary toxicity [Unknown]
  - Hypothyroidism [Unknown]
  - Fluid retention [Unknown]
  - Cardiac valve vegetation [Unknown]
  - Endocarditis [Unknown]
  - Sepsis [Unknown]
  - Disease complication [Unknown]
